FAERS Safety Report 4287722-0 (Version None)
Quarter: 2004Q1

REPORT INFORMATION
  Report Type: 
  Country: None (occurrence: None)
  Receive Date: 20040209
  Receipt Date: 20030908
  Transmission Date: 20041129
  Serious: No
  Sender: FDA-Public Use
  Company Number: US-GLAXOSMITHKLINE-A0425061A

PATIENT
  Age: 68 Year
  Sex: Male

DRUGS (2)
  1. PAXIL [Suspect]
     Dosage: 25MG PER DAY
     Route: 048
     Dates: start: 20030428
  2. REMERON [Concomitant]

REACTIONS (2)
  - FATIGUE [None]
  - VISION BLURRED [None]
